FAERS Safety Report 5877918-6 (Version None)
Quarter: 2008Q3

REPORT INFORMATION
  Report Type: 
  Country: None (occurrence: None)
  Receive Date: 20080911
  Receipt Date: 20080905
  Transmission Date: 20090109
  Serious: Yes (Death, Hospitalization)
  Sender: FDA-Public Use
  Company Number: A0746879A

PATIENT
  Age: 86 Year
  Sex: Female
  Weight: 40 kg

DRUGS (1)
  1. SERETIDE [Suspect]
     Indication: DYSPNOEA
     Route: 055
     Dates: start: 20070201, end: 20080201

REACTIONS (1)
  - LUNG INFECTION [None]
